FAERS Safety Report 10039476 (Version 1)
Quarter: 2014Q1

REPORT INFORMATION
  Report Type: Spontaneous
  Country: US (occurrence: None)
  Receive Date: 20140324
  Receipt Date: 20140324
  Transmission Date: 20141002
  Serious: Yes (Death)
  Sender: FDA-Public Use
  Company Number: UTC-046078

PATIENT
  Age: 58 Year
  Sex: Female

DRUGS (12)
  1. TYVASO (0.6 MILLIGRAM/MILLILITERS, AEROSOL FOR INHALATION) (TREPROSTINIL SODIUM) [Suspect]
     Indication: PULMONARY ARTERIAL HYPERTENSION
     Route: 055
     Dates: start: 20131011
  2. ALBUTEROL SULFATE (SALBUTAMOL SULFATE) (UNKNOWN) [Concomitant]
  3. DUONEB (COMBIVENT) (UNKNOWN) [Concomitant]
  4. SPIRONOLACTONE (SPIRONOLACTONE) [Concomitant]
  5. ZOFRAN (ONDANSETRON) [Concomitant]
  6. GABAPENTIN (GABAPENTIN) [Concomitant]
  7. FEXOFENADINE (FEXOFENADINE) [Concomitant]
  8. FERROUS SULFATE  (FERROUS SULFATE) [Concomitant]
  9. NEXIUM (ESOMEPRAZOLE MAGNESIUM) [Concomitant]
  10. TRACLEER (BOSENTAN) (UNKNOWN) [Concomitant]
  11. ASPIRIN (ACETYLSALICY ACID) [Concomitant]
  12. ALLOPURINOL (ALLOPURINOL) [Concomitant]

REACTIONS (1)
  - Death [None]
